FAERS Safety Report 7403160-3 (Version None)
Quarter: 2011Q2

REPORT INFORMATION
  Report Type: 
  Country: None (occurrence: None)
  Receive Date: 20110408
  Receipt Date: 20110404
  Transmission Date: 20111010
  Serious: Yes (Other)
  Sender: FDA-Public Use
  Company Number: US-PFIZER INC-2011074658

PATIENT
  Sex: Female
  Weight: 64.853 kg

DRUGS (2)
  1. NEURONTIN [Suspect]
     Indication: DETOXIFICATION
     Dosage: UNK
     Dates: start: 20110301, end: 20110301
  2. NEURONTIN [Suspect]
     Indication: AFFECTIVE DISORDER

REACTIONS (2)
  - RADICULOPATHY [None]
  - HYPOAESTHESIA [None]
